FAERS Safety Report 8886557 (Version 1)
Quarter: 2012Q4

REPORT INFORMATION
  Report Type: 
  Country: ES (occurrence: ES)
  Receive Date: 20121105
  Receipt Date: 20121105
  Transmission Date: 20130627
  Serious: Yes (Hospitalization)
  Sender: FDA-Public Use
  Company Number: ES-009507513-1211ESP000660

PATIENT
  Age: 76 Year
  Sex: Female

DRUGS (1)
  1. INVANZ [Suspect]
     Indication: PYELONEPHRITIS
     Dosage: 1G 1VIAL
     Route: 030
     Dates: start: 20120830, end: 20120902

REACTIONS (4)
  - Hallucination, visual [Not Recovered/Not Resolved]
  - Abnormal behaviour [Not Recovered/Not Resolved]
  - Muscular weakness [Not Recovered/Not Resolved]
  - Wrong drug administered [Recovered/Resolved]
